FAERS Safety Report 17684968 (Version 1)
Quarter: 2020Q2

REPORT INFORMATION
  Report Type: Report from Study
  Country: BR (occurrence: BR)
  Receive Date: 20200420
  Receipt Date: 20200420
  Transmission Date: 20200714
  Serious: Yes (Other)
  Sender: FDA-Public Use
  Company Number: NVSC2020BR086802

PATIENT
  Age: 71 Year
  Sex: Female

DRUGS (5)
  1. FOLIC ACID. [Concomitant]
     Active Substance: FOLIC ACID
     Indication: FOLATE DEFICIENCY
     Dosage: 1 DF, QD (STARTED MORE THAN 10 YEARS AGO)
     Route: 048
     Dates: start: 201912
  2. METHOTREXATE. [Concomitant]
     Active Substance: METHOTREXATE
     Indication: PSORIATIC ARTHROPATHY
     Dosage: 1 DF, QW (STARTED MORE THAN 10 YEARS AGO)
     Route: 058
     Dates: end: 201912
  3. COSENTYX [Suspect]
     Active Substance: SECUKINUMAB
     Dosage: 1 DF, QMO (7 YEARS AGO)
     Route: 058
  4. COSENTYX [Suspect]
     Active Substance: SECUKINUMAB
     Indication: PSORIATIC ARTHROPATHY
     Dosage: 1 DF, QMO (7 YEARS AGO)
     Route: 058
  5. OMEPRAZOLE. [Concomitant]
     Active Substance: OMEPRAZOLE
     Indication: GASTROOESOPHAGEAL REFLUX DISEASE
     Dosage: 1 DF, QD
     Route: 048

REACTIONS (7)
  - Decreased immune responsiveness [Not Recovered/Not Resolved]
  - Tongue rough [Not Recovered/Not Resolved]
  - Stomatitis [Not Recovered/Not Resolved]
  - Sinusitis [Recovered/Resolved]
  - Oral candidiasis [Not Recovered/Not Resolved]
  - Palate injury [Unknown]
  - Throat irritation [Recovered/Resolved]

NARRATIVE: CASE EVENT DATE: 20191224
